FAERS Safety Report 25165739 (Version 2)
Quarter: 2025Q2

REPORT INFORMATION
  Report Type: Spontaneous
  Country: US (occurrence: US)
  Receive Date: 20250407
  Receipt Date: 20250417
  Transmission Date: 20250716
  Serious: No
  Sender: ROCHE
  Company Number: US-ROCHE-10000243940

PATIENT
  Sex: Female

DRUGS (1)
  1. ALECENSA [Suspect]
     Active Substance: ALECTINIB HYDROCHLORIDE
     Indication: Lung neoplasm malignant
     Route: 048
     Dates: start: 202501

REACTIONS (1)
  - Protein total increased [Unknown]
